FAERS Safety Report 5401624-5 (Version None)
Quarter: 2007Q3

REPORT INFORMATION
  Report Type: 
  Country: None (occurrence: None)
  Receive Date: 20070731
  Receipt Date: 20070726
  Transmission Date: 20080115
  Serious: Yes (Hospitalization, Other)
  Sender: FDA-Public Use
  Company Number: MY-PFIZER INC-2007012651

PATIENT
  Sex: Male
  Weight: 77.1 kg

DRUGS (8)
  1. SU-011,248 [Suspect]
     Indication: METASTATIC RENAL CELL CARCINOMA
     Route: 048
  2. SU-011,248 [Suspect]
     Route: 048
  3. METFORMIN HCL [Concomitant]
     Route: 048
  4. GLICLAZIDE [Concomitant]
     Route: 048
  5. ATACAND [Concomitant]
     Route: 048
  6. FLUCONAZOLE [Concomitant]
     Route: 048
     Dates: start: 20070129, end: 20070201
  7. CIPROFLOXACIN [Concomitant]
     Route: 048
     Dates: start: 20070129, end: 20070201
  8. PANTOPRAZOLE SODIUM [Concomitant]
     Dates: start: 20070111

REACTIONS (4)
  - ANAEMIA [None]
  - FALL [None]
  - FATIGUE [None]
  - VOMITING [None]
